FAERS Safety Report 23733535 (Version 1)
Quarter: 2024Q2

REPORT INFORMATION
  Report Type: Spontaneous
  Country: BR (occurrence: None)
  Receive Date: 20240411
  Receipt Date: 20240411
  Transmission Date: 20240716
  Serious: Yes (Other)
  Sender: FDA-Public Use
  Company Number: BR-ROCHE-3537349

PATIENT
  Age: 5 Year
  Sex: Female

DRUGS (2)
  1. ZELBORAF [Suspect]
     Active Substance: VEMURAFENIB
     Indication: Langerhans^ cell histiocytosis
     Dosage: 1 TABLET PER DAY (6.3ML)
     Route: 048
     Dates: start: 2020, end: 2023
  2. ZELBORAF [Suspect]
     Active Substance: VEMURAFENIB
     Dosage: 2 TABLET PER DAY
     Route: 048
     Dates: start: 2023

REACTIONS (10)
  - Off label use [Unknown]
  - Off label use [Unknown]
  - Wrong technique in product usage process [Unknown]
  - Ear infection [Unknown]
  - Hallucination [Unknown]
  - Gait disturbance [Unknown]
  - Ill-defined disorder [Unknown]
  - Neoplasm [Unknown]
  - Disease progression [Unknown]
  - Bone disorder [Unknown]

NARRATIVE: CASE EVENT DATE: 20231101
